FAERS Safety Report 17212401 (Version 1)
Quarter: 2019Q4

REPORT INFORMATION
  Report Type: Spontaneous
  Country: JP (occurrence: JP)
  Receive Date: 20191230
  Receipt Date: 20191230
  Transmission Date: 20200122
  Serious: Yes (Other)
  Sender: FDA-Public Use
  Company Number: JP-TEVA-2019-JP-011589J

PATIENT
  Sex: Female

DRUGS (8)
  1. BLOPRESS TABLETS 4 [Suspect]
     Active Substance: CANDESARTAN CILEXETIL
     Indication: PRODUCT USED FOR UNKNOWN INDICATION
     Route: 048
  2. ADONA [Concomitant]
     Route: 048
  3. VITANEURIN CAPSULES 25 [Suspect]
     Active Substance: VITAMIN B
     Indication: PRODUCT USED FOR UNKNOWN INDICATION
     Route: 048
  4. RIMATIL [Concomitant]
     Active Substance: BUCILLAMINE
     Route: 048
  5. LENDORMIN [Concomitant]
     Active Substance: BROTIZOLAM
     Route: 048
  6. PROCESSED ACONITE ROOT [Concomitant]
     Active Substance: ACONITUM NAPELLUS ROOT
     Route: 048
  7. BLOPRESS TABLETS 2 [Suspect]
     Active Substance: CANDESARTAN CILEXETIL
     Indication: PRODUCT USED FOR UNKNOWN INDICATION
     Route: 048
  8. TAKEPRON CAPSULES 15 [Suspect]
     Active Substance: LANSOPRAZOLE
     Indication: PRODUCT USED FOR UNKNOWN INDICATION
     Route: 048
     Dates: start: 201912

REACTIONS (3)
  - Rhabdomyolysis [Unknown]
  - Chromaturia [Unknown]
  - Hypoaesthesia [Unknown]

NARRATIVE: CASE EVENT DATE: 201912
